FAERS Safety Report 6419497-0 (Version None)
Quarter: 2009Q4

REPORT INFORMATION
  Report Type: 
  Country: None (occurrence: None)
  Receive Date: 20091029
  Receipt Date: 20091022
  Transmission Date: 20100525
  Serious: Yes (Hospitalization)
  Sender: FDA-Public Use
  Company Number: RU-ASTRAZENECA-2009SE00721

PATIENT
  Age: 24789 Day
  Sex: Male
  Weight: 81 kg

DRUGS (10)
  1. ATACAND [Suspect]
     Indication: CARDIAC FAILURE
     Route: 048
     Dates: start: 20070716
  2. ATACAND [Suspect]
     Indication: HYPERTENSION
     Route: 048
     Dates: start: 20070716
  3. ATACAND [Suspect]
     Route: 048
  4. ATACAND [Suspect]
     Route: 048
  5. CRESTOR [Concomitant]
     Indication: CORONARY ARTERY DISEASE
     Route: 048
     Dates: start: 20080303
  6. CRESTOR [Concomitant]
     Indication: HYPERTENSION
     Route: 048
     Dates: start: 20080303
  7. BISOPROLOL [Concomitant]
     Indication: CORONARY ARTERY DISEASE
     Route: 048
     Dates: start: 20071020
  8. BISOPROLOL [Concomitant]
     Indication: EXTRASYSTOLES
     Route: 048
     Dates: start: 20071020
  9. BISOPROLOL [Concomitant]
     Indication: CARDIAC FAILURE
     Route: 048
     Dates: start: 20071020
  10. ACETYLSALICYLIC ACID [Concomitant]
     Indication: CORONARY ARTERY DISEASE
     Route: 048
     Dates: start: 20030101

REACTIONS (2)
  - HYPOTENSION [None]
  - VENTRICULAR EXTRASYSTOLES [None]
